FAERS Safety Report 10665986 (Version 5)
Quarter: 2015Q3

REPORT INFORMATION
  Report Type: Report from Study
  Country: JP (occurrence: JP)
  Receive Date: 20141219
  Receipt Date: 20150710
  Transmission Date: 20151125
  Serious: Yes (Death, Life-Threatening, Hospitalization, Disabling)
  Sender: FDA-Public Use
  Company Number: JP-B.I. PHARMACEUTICALS,INC./RIDGEFIELD-2014-BI-61246NB

PATIENT
  Age: 55 Year
  Sex: Female
  Weight: 39 kg

DRUGS (8)
  1. BARACLUDE [Concomitant]
     Active Substance: ENTECAVIR
     Indication: PROPHYLAXIS
     Dosage: 0.5 MG
     Route: 048
     Dates: end: 20141101
  2. GILOTRIF [Suspect]
     Active Substance: AFATINIB
     Dosage: 30 MG
     Route: 065
     Dates: start: 20141028, end: 20141101
  3. GILOTRIF [Suspect]
     Active Substance: AFATINIB
     Dosage: 30 MG
     Route: 065
     Dates: start: 20141121, end: 20141127
  4. NEXIUM [Concomitant]
     Active Substance: ESOMEPRAZOLE MAGNESIUM
     Indication: PROPHYLAXIS
     Dosage: 20 MG
     Route: 048
     Dates: end: 20141101
  5. DUROTEP [Concomitant]
     Active Substance: FENTANYL
     Indication: PAIN
     Dosage: 6.3 MG
     Route: 065
     Dates: end: 20141221
  6. COCARL [Concomitant]
     Active Substance: ACETAMINOPHEN
     Indication: PAIN
     Dosage: 1600 MG
     Route: 048
     Dates: end: 20141101
  7. DENOTAS [Concomitant]
     Active Substance: CALCIUM CARBONATE\CHOLECALCIFEROL\MAGNESIUM CARBONATE
     Indication: PROPHYLAXIS
     Dosage: 2 ANZ
     Route: 065
     Dates: end: 20141101
  8. GILOTRIF [Suspect]
     Active Substance: AFATINIB
     Indication: LUNG ADENOCARCINOMA
     Dosage: 40 MG
     Route: 065
     Dates: start: 20140909, end: 20141007

REACTIONS (8)
  - Altered state of consciousness [Not Recovered/Not Resolved]
  - Dehydration [Recovered/Resolved]
  - Acne [Recovered/Resolved]
  - Metastases to meninges [Fatal]
  - Diarrhoea [Not Recovered/Not Resolved]
  - Paronychia [Recovered/Resolved]
  - Malignant neoplasm progression [Fatal]
  - Gastroenteritis staphylococcal [Recovered/Resolved]

NARRATIVE: CASE EVENT DATE: 20140912
